FAERS Safety Report 6638237-3 (Version None)
Quarter: 2010Q1

REPORT INFORMATION
  Report Type: 
  Country: None (occurrence: None)
  Receive Date: 20100317
  Receipt Date: 20100309
  Transmission Date: 20100710
  Serious: Yes (Life-Threatening, Hospitalization)
  Sender: FDA-Public Use
  Company Number: US-SANOFI-AVENTIS-2010SA014608

PATIENT
  Age: 47 Year
  Sex: Female
  Weight: 107.05 kg

DRUGS (8)
  1. DOCETAXEL [Suspect]
     Indication: BREAST CANCER
     Route: 042
     Dates: start: 20090305, end: 20090305
  2. DOCETAXEL [Suspect]
     Route: 042
     Dates: start: 20090618, end: 20090618
  3. DOXORUBICIN [Suspect]
     Indication: BREAST CANCER
     Dates: start: 20090305, end: 20090305
  4. DOXORUBICIN [Suspect]
     Dates: start: 20090618, end: 20090618
  5. CYTOXAN [Suspect]
     Indication: BREAST CANCER
     Dates: start: 20090305, end: 20090305
  6. CYTOXAN [Suspect]
     Dates: start: 20090618, end: 20090618
  7. LASIX [Concomitant]
  8. NASONEX [Concomitant]
     Indication: SEASONAL ALLERGY

REACTIONS (1)
  - CARDIOMYOPATHY [None]
